FAERS Safety Report 20449950 (Version 1)
Quarter: 2022Q1

REPORT INFORMATION
  Report Type: Spontaneous
  Country: DE (occurrence: DE)
  Receive Date: 20220209
  Receipt Date: 20220209
  Transmission Date: 20220423
  Serious: Yes (Death, Other)
  Sender: FDA-Public Use
  Company Number: DE-NAPPMUNDI-GBR-2022-0094673

PATIENT
  Age: 77 Year
  Sex: Female

DRUGS (8)
  1. HYDROMORPHONE HYDROCHLORIDE [Suspect]
     Active Substance: HYDROMORPHONE HYDROCHLORIDE
     Indication: Cancer pain
     Dosage: UNK, BOLUS
     Route: 051
  2. HYDROMORPHONE HYDROCHLORIDE [Suspect]
     Active Substance: HYDROMORPHONE HYDROCHLORIDE
     Dosage: 10 MG, DAILY
     Route: 051
  3. FENTANYL [Suspect]
     Active Substance: FENTANYL
     Indication: Cancer pain
     Dosage: 100 MCG, Q1H
     Route: 062
  4. FENTANYL [Suspect]
     Active Substance: FENTANYL
     Dosage: 25 MCG, Q1H
     Route: 062
  5. METAMIZOLE [Suspect]
     Active Substance: METAMIZOLE
     Indication: Cancer pain
     Dosage: 5 G, DAILY
     Route: 051
  6. METAMIZOLE [Suspect]
     Active Substance: METAMIZOLE
     Dosage: 1 G, Q6H
     Route: 048
  7. BUTYLSCOPOLAMINE BROMIDE [Concomitant]
     Active Substance: BUTYLSCOPOLAMINE BROMIDE
  8. DEXAMETHASON                       /00016001/ [Concomitant]

REACTIONS (1)
  - Intestinal obstruction [Fatal]
